FAERS Safety Report 9641860 (Version 1)
Quarter: 2013Q4

REPORT INFORMATION
  Report Type: Spontaneous
  Country: US (occurrence: US)
  Receive Date: 20131023
  Receipt Date: 20131023
  Transmission Date: 20140711
  Serious: Yes (Hospitalization, Other)
  Sender: FDA-Public Use
  Company Number: US-TEVA-439033USA

PATIENT
  Sex: Female

DRUGS (15)
  1. METOCLOPRAMIDE [Suspect]
  2. REGLAN [Suspect]
  3. CALCIUM [Concomitant]
     Dosage: 1200 MILLIGRAM DAILY;
     Route: 048
  4. ACTIVALLA [Concomitant]
     Dosage: 1.0-0.5MG
     Route: 048
  5. ASPIRIN [Concomitant]
     Dosage: 81 MILLIGRAM DAILY;
     Route: 048
  6. BYSTOLIC [Concomitant]
     Dosage: 2.5 MILLIGRAM DAILY;
     Route: 048
  7. FISH OIL [Concomitant]
     Dosage: 1000 MILLIGRAM DAILY;
     Route: 048
  8. GABAPENTIN [Concomitant]
     Dosage: 300 MILLIGRAM DAILY;
     Route: 048
  9. HERBAL DRUG (TUMERIC) [Concomitant]
     Route: 048
  10. HYDROCODONE-ACETAMINOPHEN [Concomitant]
     Dosage: 5MG/500MG
  11. LEVOTHYROXINE [Concomitant]
     Dosage: 75 MICROGRAM DAILY;
     Route: 048
  12. MELOXICAM [Concomitant]
     Dosage: 4.6 MILLIGRAM DAILY;
     Route: 048
  13. NITROFURANTOIN MACROCRYSTAL [Concomitant]
     Dosage: 50 MILLIGRAM DAILY;
     Route: 048
  14. PRILOSEC [Concomitant]
     Dosage: 60 MILLIGRAM DAILY;
     Route: 048
  15. VITAMIN D3 [Concomitant]
     Dosage: 1000 UNITS
     Route: 048

REACTIONS (18)
  - Tardive dyskinesia [Unknown]
  - Tremor [Unknown]
  - Dyskinesia [Unknown]
  - Parkinsonism [Unknown]
  - Bradykinesia [Unknown]
  - Ataxia [Unknown]
  - Gait disturbance [Unknown]
  - Muscle rigidity [Unknown]
  - Fall [Unknown]
  - Muscular weakness [Unknown]
  - Dyskinesia [Unknown]
  - Sensory disturbance [Unknown]
  - Cerebrovascular disorder [Unknown]
  - Headache [Unknown]
  - Incorrect drug administration duration [Unknown]
  - Cerebrovascular accident [Unknown]
  - Walking aid user [Unknown]
  - Cardiac disorder [Unknown]
